FAERS Safety Report 8572146-8 (Version None)
Quarter: 2012Q3

REPORT INFORMATION
  Report Type: 
  Country: None (occurrence: None)
  Receive Date: 20120806
  Receipt Date: 20120802
  Transmission Date: 20120928
  Serious: Yes (Other)
  Sender: FDA-Public Use
  Company Number: IE-SANOFI-AVENTIS-2012SA026148

PATIENT
  Age: 56 Year
  Sex: Male

DRUGS (1)
  1. MULTAQ [Suspect]
     Indication: ATRIAL FIBRILLATION
     Route: 065
     Dates: start: 20110704

REACTIONS (2)
  - HYPERTHYROIDISM [None]
  - WEIGHT DECREASED [None]
